FAERS Safety Report 8028761-3 (Version None)
Quarter: 2012Q1

REPORT INFORMATION
  Report Type: 
  Country: None (occurrence: None)
  Receive Date: 20120106
  Receipt Date: 20111230
  Transmission Date: 20120608
  Serious: Yes (Hospitalization)
  Sender: FDA-Public Use
  Company Number: US-MERCK-1110USA00465

PATIENT
  Age: 60 Year
  Sex: Female
  Weight: 66 kg

DRUGS (10)
  1. HORMONES (UNSPECIFIED) [Concomitant]
     Route: 065
     Dates: start: 20000101, end: 20110201
  2. VITAMIN D (UNSPECIFIED) [Concomitant]
     Route: 065
     Dates: start: 20000101
  3. PREMPRO [Concomitant]
     Indication: OSTEOPOROSIS
     Route: 065
     Dates: start: 20000517
  4. ALENDRONATE SODIUM [Suspect]
     Indication: OSTEOPOROSIS
     Route: 065
  5. CALCIUM (UNSPECIFIED) [Concomitant]
     Route: 065
     Dates: start: 20000101
  6. FOSAMAX [Suspect]
     Route: 048
     Dates: start: 20080201, end: 20100101
  7. FOSAMAX [Suspect]
     Indication: OSTEOPOROSIS
     Route: 048
     Dates: start: 20000501, end: 20010501
  8. FOSAMAX [Suspect]
     Route: 048
     Dates: start: 20010601, end: 20080201
  9. VITAMIN E [Concomitant]
     Route: 065
     Dates: start: 20000101
  10. FEXOFENADINE HYDROCHLORIDE [Concomitant]
     Indication: HYPERSENSITIVITY
     Route: 065
     Dates: start: 20051201

REACTIONS (17)
  - URINARY TRACT DISORDER [None]
  - CALCIUM DEFICIENCY [None]
  - HAEMORRHAGIC ANAEMIA [None]
  - VITAMIN D DEFICIENCY [None]
  - SCOLIOSIS [None]
  - OSTEOARTHRITIS [None]
  - SPINAL OSTEOARTHRITIS [None]
  - OSTEONECROSIS [None]
  - BLOOD POTASSIUM DECREASED [None]
  - HYPERKERATOSIS [None]
  - ABDOMINAL DISTENSION [None]
  - HYPERTENSION [None]
  - FEMUR FRACTURE [None]
  - ROTATOR CUFF SYNDROME [None]
  - SKIN PAPILLOMA [None]
  - URINARY TRACT INFECTION [None]
  - MUSCULOSKELETAL DISORDER [None]
